FAERS Safety Report 15753905 (Version 1)
Quarter: 2018Q4

REPORT INFORMATION
  Report Type: Spontaneous
  Country: US (occurrence: US)
  Receive Date: 20181222
  Receipt Date: 20181222
  Transmission Date: 20190205
  Serious: No
  Sender: FDA-Public Use
  Company Number: US-009507513-1812USA004483

PATIENT
  Sex: Female
  Weight: 95.69 kg

DRUGS (1)
  1. NEXPLANON [Suspect]
     Active Substance: ETONOGESTREL
     Indication: CONTRACEPTION
     Dosage: 68 MILLIGRAM IMPLANT, EVERY 3 YEARS
     Route: 059
     Dates: start: 20181101, end: 20181115

REACTIONS (3)
  - Device expulsion [Recovering/Resolving]
  - Purulent discharge [Recovering/Resolving]
  - Infection [Recovering/Resolving]
